FAERS Safety Report 8265431-0 (Version None)
Quarter: 2012Q2

REPORT INFORMATION
  Report Type: 
  Country: None (occurrence: None)
  Receive Date: 20120406
  Receipt Date: 20120403
  Transmission Date: 20120825
  Serious: Yes (Hospitalization, Other)
  Sender: FDA-Public Use
  Company Number: US-PFIZER INC-2012024706

PATIENT
  Sex: Male

DRUGS (14)
  1. ALBUTEROL [Concomitant]
     Indication: ASTHMA
     Dosage: UNK
     Dates: start: 20020101
  2. WELLBUTRIN [Concomitant]
     Indication: DEPRESSION
     Dosage: UNK
     Dates: start: 20020101
  3. XANAX [Concomitant]
     Indication: ANXIETY
     Dosage: UNK
     Dates: start: 20040101
  4. RISPERIDONE [Concomitant]
     Indication: DEPRESSION
     Dosage: UNK
     Dates: start: 20020101
  5. COMBIVENT [Concomitant]
     Indication: ASTHMA
     Dosage: UNK
     Dates: start: 20020101
  6. PROZAC [Concomitant]
     Indication: DEPRESSION
     Dosage: UNK
     Dates: start: 20020101
  7. COLESTID [Concomitant]
     Indication: BLOOD CHOLESTEROL
     Dosage: UNK
     Dates: start: 20040101
  8. CHANTIX [Suspect]
     Dosage: 0.5MG/1MG
     Dates: start: 20080201, end: 20080201
  9. HYDROCODONE [Concomitant]
     Indication: PAIN
     Dosage: UNK
     Dates: start: 20010101, end: 20100101
  10. DICYCLOMINE [Concomitant]
     Indication: CROHN'S DISEASE
     Dosage: UNK
     Dates: start: 20030101
  11. FLEXERIL [Concomitant]
     Indication: PAIN
     Dosage: UNK
     Dates: start: 20010101, end: 20100101
  12. ADVAIR DISKUS 100/50 [Concomitant]
     Indication: ASTHMA
     Dosage: UNK
     Dates: start: 20020101
  13. CHANTIX [Suspect]
     Indication: SMOKING CESSATION THERAPY
     Dosage: 0.5MG/1MG
     Dates: start: 20070601, end: 20070901
  14. TRAZODONE [Concomitant]
     Indication: SLEEP DISORDER
     Dosage: UNK
     Dates: start: 20040101

REACTIONS (11)
  - ABNORMAL BEHAVIOUR [None]
  - AGITATION [None]
  - DEPRESSION [None]
  - INSOMNIA [None]
  - AMNESIA [None]
  - INTENTIONAL OVERDOSE [None]
  - SUICIDE ATTEMPT [None]
  - ANXIETY [None]
  - TACHYPHRENIA [None]
  - DISTURBANCE IN ATTENTION [None]
  - CONFUSIONAL STATE [None]
